FAERS Safety Report 17744941 (Version 3)
Quarter: 2021Q2

REPORT INFORMATION
  Report Type: Spontaneous
  Country: US (occurrence: US)
  Receive Date: 20200505
  Receipt Date: 20210506
  Transmission Date: 20210716
  Serious: Yes (Other)
  Sender: FDA-Public Use
  Company Number: US-PFIZER INC-2020179171

PATIENT
  Age: 72 Year
  Sex: Female

DRUGS (1)
  1. IBRANCE [Suspect]
     Active Substance: PALBOCICLIB
     Indication: BREAST CANCER FEMALE
     Dosage: 75 MG, CYCLIC (DAILY FOR 21 DAYS ON, 7 DAYS OFF ON A 28 DAY CYCLE)
     Dates: start: 2018

REACTIONS (17)
  - Insomnia [Unknown]
  - Constipation [Not Recovered/Not Resolved]
  - Thyroid disorder [Unknown]
  - Urinary tract infection [Unknown]
  - Restless legs syndrome [Unknown]
  - Anaemia [Unknown]
  - Joint stiffness [Recovering/Resolving]
  - Musculoskeletal stiffness [Recovering/Resolving]
  - Diarrhoea [Unknown]
  - Arthralgia [Unknown]
  - Fatigue [Unknown]
  - Muscle spasms [Unknown]
  - Gastric polyps [Unknown]
  - Large intestine polyp [Unknown]
  - Arthritis [Unknown]
  - Alopecia [Recovering/Resolving]
  - Trigger finger [Recovering/Resolving]
